FAERS Safety Report 22249021 (Version 2)
Quarter: 2023Q2

REPORT INFORMATION
  Report Type: Report from Study
  Country: US (occurrence: US)
  Receive Date: 20230425
  Receipt Date: 20230619
  Transmission Date: 20230722
  Serious: Yes (Other)
  Sender: FDA-Public Use
  Company Number: US-ABBVIE-4740901

PATIENT
  Sex: Male

DRUGS (1)
  1. HUMIRA [Suspect]
     Active Substance: ADALIMUMAB
     Indication: Hidradenitis
     Dosage: FORM STRENGTH: 40MG CITRATE FREE
     Route: 058
     Dates: start: 20220923

REACTIONS (6)
  - Limb mass [Unknown]
  - Dermal cyst [Not Recovered/Not Resolved]
  - Localised infection [Recovering/Resolving]
  - Rash papular [Recovering/Resolving]
  - Skin ulcer [Not Recovered/Not Resolved]
  - Skin mass [Not Recovered/Not Resolved]
